FAERS Safety Report 7912033-9 (Version None)
Quarter: 2011Q4

REPORT INFORMATION
  Report Type: 
  Country: None (occurrence: None)
  Receive Date: 20111114
  Receipt Date: 20111104
  Transmission Date: 20120403
  Serious: Yes (Other)
  Sender: FDA-Public Use
  Company Number: FR-ASTRAZENECA-2011SE20923

PATIENT
  Age: 25184 Day
  Sex: Male
  Weight: 80 kg

DRUGS (5)
  1. PHYSIOTENS [Concomitant]
     Indication: HYPERTENSION
  2. VANDETANIB [Suspect]
     Indication: THYROID CANCER
     Route: 048
     Dates: start: 20110228, end: 20110407
  3. VANDETANIB [Suspect]
     Route: 048
     Dates: start: 20110524, end: 20110608
  4. VANDETANIB [Suspect]
     Dosage: ALTERNANCE OF 100 MILLIGRAMS ONE DAY AND 200 MILLIGRAMS EVERY OTHER DAY
     Route: 048
     Dates: start: 20110609
  5. IRBESARTAN [Concomitant]
     Indication: HYPERTENSION

REACTIONS (5)
  - ERYTHROSIS [None]
  - ASTHENIA [None]
  - ATRIAL FIBRILLATION [None]
  - HYPERTENSION [None]
  - RENAL FAILURE [None]
